FAERS Safety Report 5104639-X (Version None)
Quarter: 2006Q3

REPORT INFORMATION
  Report Type: 
  Country: None (occurrence: None)
  Receive Date: 20060912
  Receipt Date: 20060912
  Transmission Date: 20061208
  Serious: Yes (Hospitalization)
  Sender: FDA-Public Use
  Company Number: None

PATIENT
  Sex: Female
  Weight: 97.5234 kg

DRUGS (2)
  1. GEMCITABINE [Suspect]
  2. DOCETAXOL [Suspect]

REACTIONS (7)
  - BACTERIA URINE IDENTIFIED [None]
  - CHILLS [None]
  - DYSURIA [None]
  - PYREXIA [None]
  - RASH [None]
  - RED BLOOD CELLS URINE POSITIVE [None]
  - WHITE BLOOD CELLS URINE POSITIVE [None]
